FAERS Safety Report 5591054-8 (Version None)
Quarter: 2008Q1

REPORT INFORMATION
  Report Type: 
  Country: None (occurrence: None)
  Receive Date: 20080111
  Receipt Date: 20080111
  Transmission Date: 20080703
  Serious: Yes (Hospitalization)
  Sender: FDA-Public Use
  Company Number: None

PATIENT
  Age: 29 Year
  Sex: Female
  Weight: 77.1115 kg

DRUGS (1)
  1. CEPHALEXIN [Suspect]
     Indication: URINARY TRACT INFECTION
     Dosage: 500MG   4X DAY  PO
     Route: 048
     Dates: start: 20080104, end: 20080105

REACTIONS (7)
  - CONVULSION [None]
  - DIZZINESS [None]
  - EYE ROLLING [None]
  - HOT FLUSH [None]
  - MALAISE [None]
  - NAUSEA [None]
  - PYREXIA [None]
